FAERS Safety Report 9300241 (Version 1)
Quarter: 2013Q2

REPORT INFORMATION
  Report Type: Spontaneous
  Country: GR (occurrence: GR)
  Receive Date: 20130521
  Receipt Date: 20130521
  Transmission Date: 20140414
  Serious: Yes (Other)
  Sender: FDA-Public Use
  Company Number: PHHY2013GR049103

PATIENT
  Sex: Female

DRUGS (1)
  1. HYDROCHLOROTHIAZIDE,VALSARTAN [Suspect]

REACTIONS (3)
  - Oligohydramnios [Unknown]
  - Premature delivery [Unknown]
  - Maternal exposure during pregnancy [Unknown]
